FAERS Safety Report 16253753 (Version 1)
Quarter: 2019Q2

REPORT INFORMATION
  Report Type: Spontaneous
  Country: FR (occurrence: FR)
  Receive Date: 20190430
  Receipt Date: 20190430
  Transmission Date: 20190711
  Serious: Yes (Other)
  Sender: FDA-Public Use
  Company Number: FR-LEO PHARMA-318283

PATIENT
  Age: 59 Year
  Sex: Male
  Weight: 89 kg

DRUGS (1)
  1. PROTOPIC [Suspect]
     Active Substance: TACROLIMUS
     Indication: VITILIGO
     Route: 003
     Dates: start: 2014, end: 20180710

REACTIONS (2)
  - Product use in unapproved indication [Unknown]
  - Vitreous detachment [Not Recovered/Not Resolved]

NARRATIVE: CASE EVENT DATE: 201803
